FAERS Safety Report 4686626-9 (Version None)
Quarter: 2005Q2

REPORT INFORMATION
  Report Type: 
  Country: None (occurrence: None)
  Receive Date: 20050607
  Receipt Date: 20050523
  Transmission Date: 20051028
  Serious: Yes (Hospitalization, Other)
  Sender: FDA-Public Use
  Company Number: 2005078575

PATIENT
  Age: 59 Year
  Sex: Female

DRUGS (3)
  1. CELEBREX [Suspect]
     Indication: ARTHROPATHY
     Dosage: 400 MG (200 MG, 2 IN 1 D), ORAL
     Route: 048
  2. SYNTHROID [Concomitant]
  3. ALL OTHER THERAPEUTIC (ALL OTHER THERAPEUTIC PRODUCTS) [Concomitant]

REACTIONS (2)
  - CEREBROVASCULAR ACCIDENT [None]
  - HEADACHE [None]
